FAERS Safety Report 17464788 (Version 6)
Quarter: 2020Q2

REPORT INFORMATION
  Report Type: Spontaneous
  Country: US (occurrence: US)
  Receive Date: 20200226
  Receipt Date: 20200513
  Transmission Date: 20200713
  Serious: Yes (Other)
  Sender: FDA-Public Use
  Company Number: US-PFIZER INC-2020082412

PATIENT
  Age: 59 Year
  Sex: Male
  Weight: 172.34 kg

DRUGS (1)
  1. CHANTIX [Suspect]
     Active Substance: VARENICLINE TARTRATE
     Indication: SMOKING CESSATION THERAPY
     Dosage: UNK
     Dates: start: 2018

REACTIONS (5)
  - Agitation [Not Recovered/Not Resolved]
  - Weight decreased [Unknown]
  - Bladder cancer [Not Recovered/Not Resolved]
  - Thinking abnormal [Unknown]
  - Confusional state [Not Recovered/Not Resolved]

NARRATIVE: CASE EVENT DATE: 201901
